FAERS Safety Report 9938078 (Version 2)
Quarter: 2014Q1

REPORT INFORMATION
  Report Type: Spontaneous
  Country: US (occurrence: US)
  Receive Date: 20140303
  Receipt Date: 20140303
  Transmission Date: 20141002
  Serious: Yes (Other)
  Sender: FDA-Public Use
  Company Number: US-GE HEALTHCARE MEDICAL DIAGNOSTICS-OSCN-PR-1006S-0154

PATIENT
  Age: 62 Year
  Sex: Female

DRUGS (2)
  1. OMNISCAN [Suspect]
     Dates: start: 20041029, end: 20041029
  2. OMNISCAN [Suspect]
     Dates: start: 20050927, end: 20050927

REACTIONS (1)
  - Nephrogenic systemic fibrosis [Not Recovered/Not Resolved]
